FAERS Safety Report 7424927-1 (Version None)
Quarter: 2011Q2

REPORT INFORMATION
  Report Type: 
  Country: None (occurrence: None)
  Receive Date: 20110419
  Receipt Date: 20091112
  Transmission Date: 20111010
  Serious: Yes (Other)
  Sender: FDA-Public Use
  Company Number: DE-GENENTECH-316913

PATIENT
  Sex: Female

DRUGS (1)
  1. LUCENTIS [Suspect]
     Indication: MACULAR DEGENERATION
     Route: 031

REACTIONS (5)
  - VISUAL IMPAIRMENT [None]
  - VISION BLURRED [None]
  - HALLUCINATION, VISUAL [None]
  - CEREBRAL CIRCULATORY FAILURE [None]
  - BLOOD PRESSURE INCREASED [None]
